FAERS Safety Report 9677751 (Version 2)
Quarter: 2014Q1

REPORT INFORMATION
  Report Type: Spontaneous
  Country: DE (occurrence: DE)
  Receive Date: 20131108
  Receipt Date: 20140120
  Transmission Date: 20141002
  Serious: Yes (Other)
  Sender: FDA-Public Use
  Company Number: DE-JNJFOC-20131103407

PATIENT
  Age: 84 Year
  Sex: Female
  Weight: 54 kg

DRUGS (6)
  1. XARELTO [Suspect]
     Indication: THROMBOSIS PROPHYLAXIS
     Route: 048
     Dates: start: 20131011, end: 20131029
  2. XARELTO [Suspect]
     Indication: KNEE ARTHROPLASTY
     Route: 048
     Dates: start: 20131011, end: 20131029
  3. VALSARTAN [Concomitant]
     Route: 065
  4. BELOC ZOK [Concomitant]
     Route: 065
  5. PANTOZOL [Concomitant]
     Route: 065
  6. IBUHEXAL [IBUPROFEN SODIUM] [Concomitant]
     Route: 065

REACTIONS (3)
  - Leukaemia [Unknown]
  - Leukocytosis [Recovering/Resolving]
  - Thrombocytosis [Recovering/Resolving]
